FAERS Safety Report 10424655 (Version 1)
Quarter: 2014Q3

REPORT INFORMATION
  Report Type: Spontaneous
  Country: US (occurrence: US)
  Receive Date: 20140902
  Receipt Date: 20140902
  Transmission Date: 20150326
  Serious: Yes (Death, Other)
  Sender: FDA-Public Use
  Company Number: US-GILEAD-2014-0113499

PATIENT
  Age: 72 Year
  Sex: Male

DRUGS (1)
  1. LETAIRIS [Suspect]
     Active Substance: AMBRISENTAN
     Indication: PNEUMOCONIOSIS
     Dosage: 5 MG, QD
     Route: 065
     Dates: start: 20140730

REACTIONS (1)
  - Death [Fatal]
